FAERS Safety Report 19696911 (Version 1)
Quarter: 2021Q3

REPORT INFORMATION
  Report Type: Spontaneous
  Country: US (occurrence: US)
  Receive Date: 20210813
  Receipt Date: 20210813
  Transmission Date: 20211014
  Serious: Yes (Hospitalization)
  Sender: FDA-Public Use
  Company Number: None

PATIENT
  Age: 25 Year
  Sex: Male
  Weight: 105.2 kg

DRUGS (3)
  1. VINCRISTINE SULFATE. [Suspect]
     Active Substance: VINCRISTINE SULFATE
     Dates: end: 20210730
  2. METHOTREXATE. [Suspect]
     Active Substance: METHOTREXATE
     Dates: end: 20210730
  3. ONCASPAR [Suspect]
     Active Substance: PEGASPARGASE
     Dates: end: 20210721

REACTIONS (9)
  - Oral candidiasis [None]
  - Mucosal inflammation [None]
  - Skin plaque [None]
  - Oesophageal candidiasis [None]
  - Odynophagia [None]
  - Dysphagia [None]
  - Erythema [None]
  - Skin ulcer [None]
  - Pain [None]

NARRATIVE: CASE EVENT DATE: 20210807
